FAERS Safety Report 24642370 (Version 2)
Quarter: 2025Q1

REPORT INFORMATION
  Report Type: Spontaneous
  Country: US (occurrence: US)
  Receive Date: 20241120
  Receipt Date: 20250326
  Transmission Date: 20250408
  Serious: Yes (Other)
  Sender: BIOGEN
  Company Number: US-BIOGEN-2024BI01290798

PATIENT
  Age: 40 Year
  Sex: Female

DRUGS (2)
  1. ZURZUVAE [Suspect]
     Active Substance: ZURANOLONE
     Indication: Perinatal depression
     Route: 050
     Dates: start: 202407, end: 20240730
  2. ZOLOFT [Concomitant]
     Active Substance: SERTRALINE HYDROCHLORIDE
     Indication: Product used for unknown indication
     Route: 050

REACTIONS (5)
  - Suicidal ideation [Unknown]
  - Hallucination [Unknown]
  - Dissociation [Recovered/Resolved]
  - Post-traumatic stress disorder [Unknown]
  - Perinatal depression [Unknown]

NARRATIVE: CASE EVENT DATE: 20240101
